FAERS Safety Report 12540880 (Version 2)
Quarter: 2016Q3

REPORT INFORMATION
  Report Type: Spontaneous
  Country: JP (occurrence: JP)
  Receive Date: 20160708
  Receipt Date: 20160830
  Transmission Date: 20161109
  Serious: Yes (Disabling, Other)
  Sender: FDA-Public Use
  Company Number: JP-SA-2016SA121401

PATIENT
  Age: 92 Year
  Sex: Male

DRUGS (1)
  1. FEXOFENADINE HYDROCHLORIDE SANIK [Suspect]
     Active Substance: FEXOFENADINE HYDROCHLORIDE
     Route: 048

REACTIONS (2)
  - Glaucoma [Recovered/Resolved]
  - Macular degeneration [Unknown]
